FAERS Safety Report 5250589-8 (Version None)
Quarter: 2007Q1

REPORT INFORMATION
  Report Type: 
  Country: None (occurrence: None)
  Receive Date: 20070228
  Receipt Date: 20060621
  Transmission Date: 20070707
  Serious: No
  Sender: FDA-Public Use
  Company Number: US-GLAXOSMITHKLINE-A0607596A

PATIENT
  Age: 50 Year
  Sex: Female

DRUGS (11)
  1. LAMICTAL [Suspect]
     Indication: BIPOLAR DISORDER
     Dosage: 100MG TWICE PER DAY
     Route: 048
  2. SEROQUEL [Concomitant]
  3. KLONOPIN [Concomitant]
  4. XANAX [Concomitant]
  5. AMBIEN [Concomitant]
  6. PROZAC [Concomitant]
  7. ROZEREM [Concomitant]
  8. METHADONE HCL [Concomitant]
  9. NEURONTIN [Concomitant]
  10. ZANAFLEX [Concomitant]
  11. NAPROXEN [Concomitant]

REACTIONS (2)
  - ACARODERMATITIS [None]
  - RASH [None]
